FAERS Safety Report 6087418-9 (Version None)
Quarter: 2009Q1

REPORT INFORMATION
  Report Type: 
  Country: None (occurrence: None)
  Receive Date: 20090219
  Receipt Date: 20090219
  Transmission Date: 20090719
  Serious: No
  Sender: FDA-Public Use
  Company Number: None

PATIENT
  Sex: Male
  Weight: 78.0187 kg

DRUGS (1)
  1. VOLTAREN [Suspect]
     Indication: ARTHRALGIA

REACTIONS (4)
  - BURNING SENSATION [None]
  - DRY THROAT [None]
  - HYPERHIDROSIS [None]
  - OROPHARYNGEAL BLISTERING [None]
